FAERS Safety Report 8973133 (Version 1)
Quarter: 2012Q4

REPORT INFORMATION
  Report Type: 
  Country: US (occurrence: US)
  Receive Date: 20121219
  Receipt Date: 20121219
  Transmission Date: 20130627
  Serious: Yes (Other)
  Sender: FDA-Public Use
  Company Number: US-MYLANLABS-2012S1025322

PATIENT
  Sex: Female

DRUGS (2)
  1. PACLITAXEL [Suspect]
     Indication: PAPILLARY SEROUS ENDOMETRIAL CARCINOMA
     Route: 041
  2. CARBOPLATIN [Suspect]
     Indication: PAPILLARY SEROUS ENDOMETRIAL CARCINOMA
     Dosage: AUC 5-6 once every 3 weeks
     Route: 042

REACTIONS (2)
  - Abdominal abscess [Unknown]
  - Pelvic abscess [Unknown]
